FAERS Safety Report 8046688-8 (Version None)
Quarter: 2012Q1

REPORT INFORMATION
  Report Type: 
  Country: None (occurrence: None)
  Receive Date: 20120116
  Receipt Date: 20120112
  Transmission Date: 20120608
  Serious: Yes (Death)
  Sender: FDA-Public Use
  Company Number: US-BRISTOL-MYERS SQUIBB COMPANY-16348096

PATIENT
  Age: 37 Year
  Sex: Female

DRUGS (1)
  1. YERVOY [Suspect]
     Indication: CHOROID MELANOMA
     Dates: start: 20110801

REACTIONS (1)
  - DEATH [None]
